FAERS Safety Report 6533333-3 (Version None)
Quarter: 2010Q1

REPORT INFORMATION
  Report Type: 
  Country: None (occurrence: None)
  Receive Date: 20100111
  Receipt Date: 20100107
  Transmission Date: 20100710
  Serious: Yes (Hospitalization)
  Sender: FDA-Public Use
  Company Number: A0838568A

PATIENT
  Sex: Female

DRUGS (5)
  1. DYAZIDE [Suspect]
     Route: 048
     Dates: start: 19810101
  2. TRIAMTERENE AND HYDROCHLOROTHIAZIDE [Suspect]
     Indication: DRUG USE FOR UNKNOWN INDICATION
  3. MUCINEX [Concomitant]
  4. CEFTIN [Concomitant]
  5. ALBUTEROL [Concomitant]

REACTIONS (5)
  - CARBON DIOXIDE INCREASED [None]
  - CHRONIC OBSTRUCTIVE PULMONARY DISEASE [None]
  - DYSPNOEA [None]
  - H1N1 INFLUENZA [None]
  - SWELLING [None]
